FAERS Safety Report 20144995 (Version 1)
Quarter: 2021Q4

REPORT INFORMATION
  Report Type: Spontaneous
  Country: US (occurrence: None)
  Receive Date: 20211130
  Receipt Date: 20211130
  Transmission Date: 20220303
  Serious: No
  Sender: FDA-Public Use
  Company Number: None

PATIENT

DRUGS (1)
  1. CANNABIDIOL\HERBALS [Suspect]
     Active Substance: CANNABIDIOL\HERBALS

REACTIONS (5)
  - Transmission of an infectious agent via product [None]
  - Product contamination microbial [None]
  - Manufacturing laboratory analytical testing issue [None]
  - Product contamination chemical [None]
  - Product contamination physical [None]
